FAERS Safety Report 5307282-2 (Version None)
Quarter: 2007Q2

REPORT INFORMATION
  Report Type: 
  Country: None (occurrence: None)
  Receive Date: 20070425
  Receipt Date: 20070413
  Transmission Date: 20071010
  Serious: Yes (Hospitalization)
  Sender: FDA-Public Use
  Company Number: DE-GENENTECH-237994

PATIENT
  Sex: Female
  Weight: 89 kg

DRUGS (11)
  1. TRASTUZUMAB [Suspect]
     Indication: BREAST CANCER
     Dosage: 680 MG, UNK
     Route: 042
     Dates: start: 20061116
  2. TRASTUZUMAB [Suspect]
     Dosage: 532 MG, UNK
     Route: 042
  3. CAPECITABINE [Suspect]
     Indication: BREAST CANCER
     Dosage: 3500 MG, BID
     Route: 048
     Dates: start: 20070209
  4. DOCETAXEL [Suspect]
     Indication: BREAST CANCER
     Dosage: 152 MG, UNK
     Route: 042
     Dates: start: 20070208
  5. EPIRUBICIN [Suspect]
     Indication: BREAST CANCER
     Dosage: 170 MG, UNK
     Route: 042
     Dates: start: 20061116
  6. CYCLOPHOSPHAMIDE [Suspect]
     Indication: BREAST CANCER
     Dosage: 1194 MG, UNK
     Route: 042
     Dates: start: 20061116
  7. FRAXIPARIN [Concomitant]
     Indication: DRUG USE FOR UNKNOWN INDICATION
     Dates: start: 20061123, end: 20061128
  8. METOCLOPRAMIDE [Concomitant]
     Indication: DRUG USE FOR UNKNOWN INDICATION
     Dates: start: 20061117
  9. DIMENHYDRINATE [Concomitant]
     Indication: DRUG USE FOR UNKNOWN INDICATION
     Dates: start: 20061117
  10. PANTOZOL [Concomitant]
     Indication: DRUG USE FOR UNKNOWN INDICATION
     Dates: start: 20070218
  11. EUTHYROX [Concomitant]
     Indication: DRUG USE FOR UNKNOWN INDICATION

REACTIONS (3)
  - EJECTION FRACTION DECREASED [None]
  - SYNCOPE [None]
  - TACHYCARDIA [None]
